FAERS Safety Report 5742663-4 (Version None)
Quarter: 2008Q2

REPORT INFORMATION
  Report Type: 
  Country: None (occurrence: None)
  Receive Date: 20080515
  Receipt Date: 20080515
  Transmission Date: 20081010
  Serious: Yes (Hospitalization, Disabling, Other)
  Sender: FDA-Public Use
  Company Number: None

PATIENT
  Sex: Female
  Weight: 79.3795 kg

DRUGS (1)
  1. CLOPIDOGREL [Suspect]
     Indication: DRUG THERAPY
     Dosage: 75 MG ONE DAILY
     Dates: start: 20070110, end: 20070301

REACTIONS (7)
  - ANAEMIA [None]
  - ASTHENIA [None]
  - DYSPNOEA [None]
  - ERYTHEMA [None]
  - GASTRIC PERFORATION [None]
  - HAEMATOCHEZIA [None]
  - HAEMORRHAGE [None]
